FAERS Safety Report 19938171 (Version 1)
Quarter: 2021Q4

REPORT INFORMATION
  Report Type: Report from Study
  Country: None (occurrence: US)
  Receive Date: 20211011
  Receipt Date: 20211011
  Transmission Date: 20220303
  Serious: Yes (Other)
  Sender: FDA-Public Use
  Company Number: US-ABBVIE-21K-163-3832052-00

PATIENT
  Age: 36 Year
  Sex: Female

DRUGS (3)
  1. HUMIRA [Suspect]
     Active Substance: ADALIMUMAB
     Indication: Crohn^s disease
     Dosage: CITRATE FREE
     Route: 058
  2. METHOTREXATE [Suspect]
     Active Substance: METHOTREXATE
     Indication: Product used for unknown indication
     Route: 065
  3. COVID-19 VACCINE [Concomitant]
     Indication: COVID-19 immunisation
     Dosage: JOHNSON AND JOHNSON
     Route: 030
     Dates: start: 20210713, end: 20210713

REACTIONS (24)
  - Ovarian cyst [Recovering/Resolving]
  - LE cells present [Recovering/Resolving]
  - Skin disorder [Unknown]
  - Mobility decreased [Unknown]
  - Skin ulcer [Unknown]
  - Fatigue [Unknown]
  - Patient-device incompatibility [Unknown]
  - Respiratory disorder [Unknown]
  - Injection site warmth [Recovered/Resolved]
  - Blood test abnormal [Recovering/Resolving]
  - Muscle spasms [Unknown]
  - Injection site vesicles [Recovered/Resolved]
  - COVID-19 [Recovered/Resolved]
  - Injection site erythema [Recovered/Resolved]
  - Injection site papule [Recovered/Resolved]
  - Abdominal pain upper [Recovered/Resolved]
  - Injection site pain [Recovered/Resolved]
  - Muscle spasms [Recovered/Resolved]
  - Clostridium difficile colitis [Recovered/Resolved]
  - Injection site pruritus [Recovered/Resolved]
  - Injection site swelling [Recovered/Resolved]
  - Tendonitis [Unknown]
  - Iliotibial band syndrome [Unknown]
  - Headache [Unknown]

NARRATIVE: CASE EVENT DATE: 20210101
